FAERS Safety Report 19176138 (Version 2)
Quarter: 2022Q1

REPORT INFORMATION
  Report Type: Report from Study
  Country: CA (occurrence: CA)
  Receive Date: 20210423
  Receipt Date: 20220321
  Transmission Date: 20220423
  Serious: Yes (Other)
  Sender: FDA-Public Use
  Company Number: CA-BAUSCH-BL-2021-013354

PATIENT
  Age: 60 Year
  Sex: Female
  Weight: 80 kg

DRUGS (7)
  1. ALBUTEROL [Suspect]
     Active Substance: ALBUTEROL
     Indication: Asthma
     Route: 065
  2. ALVESCO [Suspect]
     Active Substance: CICLESONIDE
     Indication: Product used for unknown indication
     Route: 055
  3. FLUTICASONE PROPIONATE\SALMETEROL XINAFOATE [Suspect]
     Active Substance: FLUTICASONE PROPIONATE\SALMETEROL XINAFOATE
     Indication: Asthma
     Route: 065
  4. TIOTROPIUM BROMIDE [Suspect]
     Active Substance: TIOTROPIUM BROMIDE
     Indication: Product used for unknown indication
     Route: 065
  5. ADVAIR HFA [Suspect]
     Active Substance: FLUTICASONE PROPIONATE\SALMETEROL XINAFOATE
     Indication: Asthma
     Dosage: TWO TIMES IN A DAY.
     Route: 065
  6. SPIRIVA [Suspect]
     Active Substance: TIOTROPIUM BROMIDE MONOHYDRATE
     Indication: Product used for unknown indication
     Route: 065
  7. PREDNISONE [Concomitant]
     Active Substance: PREDNISONE
     Indication: Asthma

REACTIONS (33)
  - Aspirin-exacerbated respiratory disease [Unknown]
  - Asthma [Unknown]
  - Blood immunoglobulin E increased [Unknown]
  - Bronchial secretion retention [Unknown]
  - Bronchial wall thickening [Unknown]
  - Chest X-ray abnormal [Unknown]
  - Dyspnoea paroxysmal nocturnal [Unknown]
  - Emphysema [Unknown]
  - Eosinophil count increased [Unknown]
  - Fatigue [Unknown]
  - Gastrooesophageal reflux disease [Unknown]
  - Histoplasmosis [Unknown]
  - Infection [Unknown]
  - Lung diffusion test decreased [Unknown]
  - Lung hyperinflation [Unknown]
  - Lung opacity [Unknown]
  - Lymphadenopathy [Unknown]
  - Malaise [Unknown]
  - Mucosal haemorrhage [Unknown]
  - Obstructive airways disorder [Unknown]
  - Obstructive airways disorder [Unknown]
  - Oral candidiasis [Unknown]
  - Productive cough [Unknown]
  - Pulmonary cavitation [Unknown]
  - Pulmonary mass [Unknown]
  - Rales [Unknown]
  - Sarcoidosis [Unknown]
  - Spinal osteoarthritis [Unknown]
  - Weight decreased [Unknown]
  - Cough [Unknown]
  - Wheezing [Unknown]
  - Night sweats [Unknown]
  - Therapeutic product effect incomplete [Unknown]
